FAERS Safety Report 17113854 (Version 1)
Quarter: 2019Q4

REPORT INFORMATION
  Report Type: Spontaneous
  Country: US (occurrence: US)
  Receive Date: 20191112
  Receipt Date: 20191112
  Transmission Date: 20200122
  Serious: No
  Sender: FDA-Public Use
  Company Number: None

PATIENT
  Sex: Female

DRUGS (1)
  1. CUVITRU [Suspect]
     Active Substance: HUMAN IMMUNOGLOBULIN G
     Indication: IMMUNODEFICIENCY COMMON VARIABLE
     Route: 058
     Dates: start: 20191018

REACTIONS (7)
  - Vomiting [None]
  - Nausea [None]
  - Headache [None]
  - Pustule [None]
  - Muscle spasms [None]
  - Myalgia [None]
  - Hypophagia [None]
